FAERS Safety Report 7618732-0 (Version None)
Quarter: 2011Q3

REPORT INFORMATION
  Report Type: 
  Country: None (occurrence: None)
  Receive Date: 20110718
  Receipt Date: 20110711
  Transmission Date: 20111222
  Serious: Yes (Life-Threatening, Other)
  Sender: FDA-Public Use
  Company Number: PHHY2011US58954

PATIENT
  Sex: Male
  Weight: 82.54 kg

DRUGS (1)
  1. GLEEVEC [Suspect]
     Dosage: 400 MG, QD
     Route: 048
     Dates: start: 20110620

REACTIONS (4)
  - HEPATIC CANCER STAGE IV [None]
  - GASTRIC CANCER STAGE IV [None]
  - NEOPLASM MALIGNANT [None]
  - HAEMATEMESIS [None]
